FAERS Safety Report 8796107 (Version 1)
Quarter: 2012Q4

REPORT INFORMATION
  Report Type: 
  Country: FR (occurrence: FR)
  Receive Date: 20120919
  Receipt Date: 20120919
  Transmission Date: 20130627
  Serious: Yes (Hospitalization)
  Sender: FDA-Public Use
  Company Number: FR-ASTRAZENECA-2012SE71618

PATIENT
  Age: 69 Year
  Sex: Male

DRUGS (4)
  1. CRESTOR [Suspect]
     Indication: DYSLIPIDAEMIA
     Route: 048
     Dates: end: 201208
  2. JANUMET [Concomitant]
     Route: 048
  3. AMAREL [Concomitant]
     Route: 048
  4. ALLOPURINOL [Concomitant]
     Route: 048

REACTIONS (1)
  - Dermatitis exfoliative [Recovered/Resolved]
